FAERS Safety Report 24678170 (Version 1)
Quarter: 2024Q4

REPORT INFORMATION
  Report Type: Spontaneous
  Country: PT (occurrence: PT)
  Receive Date: 20241129
  Receipt Date: 20241129
  Transmission Date: 20250115
  Serious: Yes (Hospitalization)
  Sender: JOHNSON AND JOHNSON
  Company Number: PT-JNJFOC-20241169338

PATIENT
  Age: 15 Year
  Sex: Female

DRUGS (3)
  1. UPTRAVI [Suspect]
     Active Substance: SELEXIPAG
     Indication: Portopulmonary hypertension
     Route: 048
     Dates: start: 202111
  2. RIOCIGUAT [Concomitant]
     Active Substance: RIOCIGUAT
  3. TREPROSTINIL [Concomitant]
     Active Substance: TREPROSTINIL

REACTIONS (4)
  - Dyspnoea exertional [Unknown]
  - Fatigue [Unknown]
  - N-terminal prohormone brain natriuretic peptide increased [Unknown]
  - Off label use [Unknown]

NARRATIVE: CASE EVENT DATE: 20211101
